FAERS Safety Report 15622865 (Version 1)
Quarter: 2018Q4

REPORT INFORMATION
  Report Type: Spontaneous
  Country: US (occurrence: US)
  Receive Date: 20181115
  Receipt Date: 20181115
  Transmission Date: 20190205
  Serious: No
  Sender: FDA-Public Use
  Company Number: US-009507513-1810USA013820

PATIENT
  Age: 34 Year
  Sex: Female

DRUGS (4)
  1. LEUPROLIDE [Concomitant]
     Active Substance: LEUPROLIDE
  2. CRINONE [Concomitant]
     Active Substance: PROGESTERONE
  3. GONADOTROPIN, CHORIONIC [Concomitant]
     Active Substance: CHORIOGONADOTROPIN ALFA
  4. FOLLISTIM [Suspect]
     Active Substance: FOLLITROPIN
     Indication: INFERTILITY FEMALE
     Dosage: 125 INTERNATIONAL UNIT, BID
     Route: 058
     Dates: start: 20180928

REACTIONS (2)
  - Product packaging issue [Unknown]
  - Inappropriate schedule of product administration [Unknown]

NARRATIVE: CASE EVENT DATE: 20180928
